FAERS Safety Report 18395037 (Version 3)
Quarter: 2020Q4

REPORT INFORMATION
  Report Type: Report from Study
  Country: FR (occurrence: FR)
  Receive Date: 20201016
  Receipt Date: 20201204
  Transmission Date: 20210114
  Serious: Yes (Death)
  Sender: FDA-Public Use
  Company Number: FR-BRISTOL-MYERS SQUIBB COMPANY-BMS-2020-056321

PATIENT
  Age: 80 Year
  Sex: Male
  Weight: 78 kg

DRUGS (13)
  1. PROTIFAR [Concomitant]
     Active Substance: DIETARY SUPPLEMENT
     Indication: PROPHYLAXIS
     Dosage: 30 GRAM
     Route: 048
     Dates: start: 20200415
  2. INNOHEP [Concomitant]
     Active Substance: TINZAPARIN SODIUM
     Indication: PROPHYLAXIS
     Dosage: 1 DOSAGE FORM (1 DF =4500  UNITS NOS)
     Route: 058
     Dates: start: 20200114
  3. INNOHEP [Concomitant]
     Active Substance: TINZAPARIN SODIUM
     Dosage: 1 DOSAGE FORM (1 DF =11000   UNITS NOS)
     Route: 058
     Dates: start: 20200603
  4. PARACETAMOL [Concomitant]
     Active Substance: ACETAMINOPHEN
     Indication: PRODUCT USED FOR UNKNOWN INDICATION
     Dosage: UNK
     Route: 048
     Dates: start: 20200107
  5. LAMALINE (ACETAMINOPHEN\CAFFEINE\OPIUM) [Concomitant]
     Active Substance: ACETAMINOPHEN\CAFFEINE\OPIUM
     Indication: PRODUCT USED FOR UNKNOWN INDICATION
     Dosage: UNK
     Route: 048
  6. OXYNORM [Concomitant]
     Active Substance: OXYCODONE HYDROCHLORIDE
     Indication: PRODUCT USED FOR UNKNOWN INDICATION
     Dosage: 5 MILLIGRAM
     Route: 048
     Dates: start: 20200108
  7. PANTOPRAZOLE [Concomitant]
     Active Substance: PANTOPRAZOLE
     Indication: PRODUCT USED FOR UNKNOWN INDICATION
     Dosage: 20 MILLIGRAM
     Route: 048
     Dates: start: 20200229
  8. METOCLOPRAMIDE. [Concomitant]
     Active Substance: METOCLOPRAMIDE
     Indication: PRODUCT USED FOR UNKNOWN INDICATION
     Dosage: 30 MILLIGRAM
     Route: 048
  9. NIVOLUMAB [Suspect]
     Active Substance: NIVOLUMAB
     Indication: RENAL CELL CARCINOMA
     Dosage: 100 MILLILITER
     Route: 042
     Dates: start: 20200114
  10. PLACEBO [Suspect]
     Active Substance: UNSPECIFIED INGREDIENT
     Indication: RENAL CELL CARCINOMA
     Dosage: 50 MILLILITER
     Route: 042
     Dates: start: 20200114
  11. ZOPICLONE [Concomitant]
     Active Substance: ZOPICLONE
     Indication: PRODUCT USED FOR UNKNOWN INDICATION
     Dosage: 1 DOSAGE FORM ( 1DF =1 UNITS NOS)
     Route: 048
  12. ALFUZOSIN [Concomitant]
     Active Substance: ALFUZOSIN
     Indication: PRODUCT USED FOR UNKNOWN INDICATION
     Dosage: 10 MILLIGRAM
     Route: 048
  13. DOMPERIDONE [Concomitant]
     Active Substance: DOMPERIDONE
     Indication: PRODUCT USED FOR UNKNOWN INDICATION
     Dosage: 30 MILLIGRAM
     Route: 048
     Dates: start: 20200603

REACTIONS (1)
  - General physical health deterioration [Fatal]

NARRATIVE: CASE EVENT DATE: 20200710
